FAERS Safety Report 5796161-2 (Version None)
Quarter: 2008Q3

REPORT INFORMATION
  Report Type: 
  Country: None (occurrence: None)
  Receive Date: 20080701
  Receipt Date: 20080617
  Transmission Date: 20090109
  Serious: Yes (Life-Threatening, Hospitalization, Other)
  Sender: FDA-Public Use
  Company Number: FR-ELI_LILLY_AND_COMPANY-FR200804001409

PATIENT
  Age: 56 Year
  Sex: Male
  Weight: 71 kg

DRUGS (6)
  1. GEMZAR [Suspect]
     Indication: PANCREATIC CARCINOMA
     Dosage: 1970 MG, ON DAY 1, 8 AND 15 OF 4 WEEKLY CYCLES
     Route: 042
     Dates: start: 20080123
  2. GEMZAR [Suspect]
     Dosage: 1300 MG, ON DAY 1, 8 AND 15 OF 4 WEEKLY CYCLES
     Route: 042
     Dates: end: 20080321
  3. CLAMOXYL /00249601/ [Concomitant]
     Indication: ESCHERICHIA BACTERAEMIA
     Dosage: 6 G, DAILY (1/D)
     Route: 048
     Dates: start: 20080224
  4. SEROPLEX [Concomitant]
     Indication: DEPRESSION
     Dosage: 10, UNKNOWN
     Route: 048
  5. SKENAN [Concomitant]
     Indication: PAIN
     Dosage: 10X2, UNKNOWN
     Route: 048
  6. OFLOCET [Concomitant]
     Indication: ESCHERICHIA BACTERAEMIA
     Dosage: 200 MG, 2/D
     Route: 048
     Dates: start: 20080224

REACTIONS (5)
  - CHOLECYSTITIS [None]
  - DISSEMINATED INTRAVASCULAR COAGULATION [None]
  - DYSPNOEA [None]
  - INTERSTITIAL LUNG DISEASE [None]
  - THROMBOCYTOPENIA [None]
